FAERS Safety Report 19811627 (Version 1)
Quarter: 2021Q3

REPORT INFORMATION
  Report Type: Spontaneous
  Country: GB (occurrence: GB)
  Receive Date: 20210909
  Receipt Date: 20210909
  Transmission Date: 20211014
  Serious: Yes (Hospitalization, Other)
  Sender: FDA-Public Use
  Company Number: GB-ACCORD-237585

PATIENT
  Age: 58 Year
  Sex: Female

DRUGS (10)
  1. PERTUZUMAB. [Suspect]
     Active Substance: PERTUZUMAB
     Indication: BREAST CANCER
     Dosage: FOR 12?18 MONTHS
  2. SALBUTAMOL [Concomitant]
     Active Substance: ALBUTEROL
     Indication: ASTHMA
     Route: 055
  3. TRASTUZUMAB. [Suspect]
     Active Substance: TRASTUZUMAB
     Indication: BREAST CANCER
     Dosage: FOR 12?18 MONTHS
  4. AMITRIPTYLINE/AMITRIPTYLINE HYDROCHLORIDE/AMITRIPTYLINE PAMOATE/AMITRIPTYLINOXIDE [Concomitant]
     Active Substance: AMITRIPTYLINE
     Dosage: ONCE NIGHTLY
  5. DOCETAXEL. [Suspect]
     Active Substance: DOCETAXEL
     Indication: BREAST CANCER
     Dosage: EVERY 3 WEEKS
  6. METOCLOPRAMIDE. [Concomitant]
     Active Substance: METOCLOPRAMIDE
     Indication: NAUSEA
  7. PARACETAMOL [Concomitant]
     Active Substance: ACETAMINOPHEN
     Indication: PAIN
     Dosage: 1G FOUR TIMES PER DAY
  8. ONDANSETRON/ONDANSETRON HYDROCHLORIDE [Concomitant]
     Active Substance: ONDANSETRON HYDROCHLORIDE
     Indication: NAUSEA
  9. CARBOPLATIN. [Suspect]
     Active Substance: CARBOPLATIN
     Indication: BREAST CANCER
     Dosage: EVERY 3 WEEKS
  10. FILGRASTIM [Concomitant]
     Active Substance: FILGRASTIM
     Indication: PROPHYLAXIS

REACTIONS (4)
  - Bundle branch block [Recovering/Resolving]
  - Ventricular extrasystoles [Recovering/Resolving]
  - Postural orthostatic tachycardia syndrome [Recovering/Resolving]
  - Sinus tachycardia [Recovering/Resolving]
